FAERS Safety Report 17913918 (Version 2)
Quarter: 2020Q3

REPORT INFORMATION
  Report Type: Report from Study
  Country: CA (occurrence: CA)
  Receive Date: 20200618
  Receipt Date: 20200706
  Transmission Date: 20201103
  Serious: Yes (Other)
  Sender: FDA-Public Use
  Company Number: CA-JNJFOC-20200106250

PATIENT
  Age: 62 Year
  Sex: Male
  Weight: 86.8 kg

DRUGS (1)
  1. REMICADE [Suspect]
     Active Substance: INFLIXIMAB
     Indication: PROCTITIS ULCERATIVE
     Dosage: 5 MG/KG
     Route: 042
     Dates: start: 20170215, end: 20200423

REACTIONS (5)
  - Pyrexia [Unknown]
  - Productive cough [Unknown]
  - Insomnia [Unknown]
  - Thyroid cancer [Unknown]
  - Arrhythmia [Unknown]

NARRATIVE: CASE EVENT DATE: 2019
